FAERS Safety Report 10151925 (Version 1)
Quarter: 2014Q2

REPORT INFORMATION
  Report Type: Report from Study
  Country: CA (occurrence: CA)
  Receive Date: 20140505
  Receipt Date: 20140505
  Transmission Date: 20141212
  Serious: Yes (Other)
  Sender: FDA-Public Use
  Company Number: CA-JNJFOC-20140420103

PATIENT
  Age: 67 Year
  Sex: Female
  Weight: 106.3 kg

DRUGS (8)
  1. REMICADE [Suspect]
     Indication: PRODUCT USED FOR UNKNOWN INDICATION
     Route: 042
     Dates: start: 201112
  2. FLURAZEPAM [Concomitant]
     Dosage: AS NECESSARY
     Route: 065
  3. ZOPLICONE [Concomitant]
     Dosage: AS NECESSARY
     Route: 065
  4. ATIVAN [Concomitant]
     Dosage: AS NECESSARY
     Route: 065
  5. SYNTHROID [Concomitant]
     Route: 065
  6. CHLORTHALIDONE [Concomitant]
     Route: 065
  7. MULTIVITAMINS [Concomitant]
     Route: 065
  8. POTASSIUM [Concomitant]
     Route: 065

REACTIONS (2)
  - Haematochezia [Not Recovered/Not Resolved]
  - Abdominal pain lower [Not Recovered/Not Resolved]
